FAERS Safety Report 17099086 (Version 6)
Quarter: 2020Q2

REPORT INFORMATION
  Report Type: Spontaneous
  Country: US (occurrence: US)
  Receive Date: 20191202
  Receipt Date: 20200413
  Transmission Date: 20200713
  Serious: No
  Sender: FDA-Public Use
  Company Number: US-PFIZER INC-2019513686

PATIENT
  Age: 71 Year
  Sex: Female

DRUGS (1)
  1. XELJANZ XR [Suspect]
     Active Substance: TOFACITINIB CITRATE
     Dosage: 11 MG, UNK

REACTIONS (10)
  - Pain [Unknown]
  - Malaise [Not Recovered/Not Resolved]
  - Anxiety [Unknown]
  - Insomnia [Unknown]
  - Tremor [Unknown]
  - Emotional disorder [Unknown]
  - Condition aggravated [Unknown]
  - Musculoskeletal disorder [Unknown]
  - Loss of personal independence in daily activities [Unknown]
  - Drug ineffective [Unknown]
